FAERS Safety Report 26178195 (Version 1)
Quarter: 2025Q4

REPORT INFORMATION
  Report Type: Spontaneous
  Country: CA (occurrence: CA)
  Receive Date: 20251219
  Receipt Date: 20251219
  Transmission Date: 20260117
  Serious: Yes (Other)
  Sender: APOTEX
  Company Number: CA-PGRTD-001158128

PATIENT
  Age: 43 Year
  Sex: Female
  Weight: 70.45 kg

DRUGS (1)
  1. GATIFLOXACIN [Suspect]
     Active Substance: GATIFLOXACIN
     Indication: Antibiotic prophylaxis
     Dosage: 4 EVERY 1 DAYS

REACTIONS (4)
  - Eye swelling [Recovering/Resolving]
  - Lacrimation increased [Recovering/Resolving]
  - Eye pain [Recovering/Resolving]
  - Hypersensitivity [Recovering/Resolving]
